FAERS Safety Report 13924007 (Version 1)
Quarter: 2017Q3

REPORT INFORMATION
  Report Type: Spontaneous
  Country: US (occurrence: None)
  Receive Date: 20170830
  Receipt Date: 20170830
  Transmission Date: 20171127
  Serious: Yes (Hospitalization)
  Sender: FDA-Public Use
  Company Number: None

PATIENT
  Age: 75 Year
  Sex: Female
  Weight: 67.5 kg

DRUGS (3)
  1. CARBOPLATIN. [Suspect]
     Active Substance: CARBOPLATIN
     Dates: start: 20170615
  2. TAXOL [Suspect]
     Active Substance: PACLITAXEL
     Dates: end: 20170615
  3. METFORMIN HYDROCHLORIDE. [Suspect]
     Active Substance: METFORMIN HYDROCHLORIDE
     Dates: end: 20170816

REACTIONS (5)
  - Neuropathy peripheral [None]
  - Hip fracture [None]
  - Back pain [None]
  - Arthralgia [None]
  - Fall [None]

NARRATIVE: CASE EVENT DATE: 20170823
